FAERS Safety Report 5540620-4 (Version None)
Quarter: 2007Q4

REPORT INFORMATION
  Report Type: 
  Country: None (occurrence: None)
  Receive Date: 20071129
  Receipt Date: 20070419
  Transmission Date: 20080405
  Serious: Yes (Other)
  Sender: FDA-Public Use
  Company Number: US200704004291

PATIENT
  Age: 52 Year
  Sex: Female
  Weight: 95.2 kg

DRUGS (5)
  1. ZYPREXA [Suspect]
     Dates: start: 20060801, end: 20070201
  2. ALIMTA [Suspect]
     Indication: LUNG NEOPLASM MALIGNANT
     Dosage: OTHER
     Route: 050
     Dates: start: 20061001
  3. DEXAMETHASONE TAB [Concomitant]
  4. VITAMIN B12 [Concomitant]
  5. FOLIC ACID [Concomitant]

REACTIONS (4)
  - BLOOD GLUCOSE ABNORMAL [None]
  - DIABETES MELLITUS [None]
  - NEUROPATHY [None]
  - WEIGHT INCREASED [None]
